FAERS Safety Report 9195593 (Version 6)
Quarter: 2013Q4

REPORT INFORMATION
  Report Type: Spontaneous
  Country: US (occurrence: US)
  Receive Date: 20130328
  Receipt Date: 20131126
  Transmission Date: 20140711
  Serious: Yes (Hospitalization, Other)
  Sender: FDA-Public Use
  Company Number: US-BIOGENIDEC-2013BI027010

PATIENT
  Age: 60 Year
  Sex: Female

DRUGS (1)
  1. TYSABRI [Suspect]
     Indication: MULTIPLE SCLEROSIS
     Route: 042
     Dates: start: 20130301

REACTIONS (6)
  - Influenza like illness [Unknown]
  - Urinary tract infection [Recovered/Resolved]
  - Abscess limb [Recovered/Resolved]
  - Sepsis [Recovered/Resolved]
  - Wound [Not Recovered/Not Resolved]
  - Wound infection [Unknown]
